FAERS Safety Report 21984423 (Version 1)
Quarter: 2023Q1

REPORT INFORMATION
  Report Type: Spontaneous
  Country: US (occurrence: US)
  Receive Date: 20230213
  Receipt Date: 20230213
  Transmission Date: 20230417
  Serious: No
  Sender: FDA-Public Use
  Company Number: US-drreddys-SPO/USA/23/0159958

PATIENT
  Age: 23 Year
  Sex: Female

DRUGS (3)
  1. ZENATANE [Suspect]
     Active Substance: ISOTRETINOIN
     Indication: Acne
     Dosage: RMA ISSUE DATES: 15 NOVEMBER 2022 11:45:10 AM, 21 NOVEMBER 2022 12:26:25 PM, 07 DECEMBER 2022 09:52:
  2. ZENATANE [Suspect]
     Active Substance: ISOTRETINOIN
     Dosage: RMA ISSUE DATE: 21 NOVEMBER 2022 12:34:28 PM
  3. ZENATANE [Suspect]
     Active Substance: ISOTRETINOIN
     Dosage: RMA ISSUE DATES: 16 SEPTEMBER 2022 01:21:49 PM, 13 OCTOBER 2022 02:59:40 PM

REACTIONS (1)
  - Urticaria [Unknown]
